FAERS Safety Report 6580325-4 (Version None)
Quarter: 2010Q1

REPORT INFORMATION
  Report Type: 
  Country: None (occurrence: None)
  Receive Date: 20100212
  Receipt Date: 20100203
  Transmission Date: 20100710
  Serious: No
  Sender: FDA-Public Use
  Company Number: US-ALLERGAN-1000470US

PATIENT
  Sex: Female

DRUGS (8)
  1. COMBIGAN [Suspect]
     Indication: GLAUCOMA
     Dosage: UNK
     Route: 047
     Dates: start: 20090713, end: 20100108
  2. LEVOXYL [Concomitant]
  3. NEXIUM [Concomitant]
  4. CYTOMEL [Concomitant]
  5. CRESTOR [Concomitant]
  6. PAXIL [Concomitant]
  7. ASPIRIN [Concomitant]
  8. ZYRTEC [Concomitant]

REACTIONS (5)
  - EYE IRRITATION [None]
  - EYE PRURITUS [None]
  - EYE SWELLING [None]
  - OCULAR HYPERAEMIA [None]
  - VISION BLURRED [None]
